FAERS Safety Report 17395974 (Version 2)
Quarter: 2020Q1

REPORT INFORMATION
  Report Type: Spontaneous
  Country: DE (occurrence: DE)
  Receive Date: 20200210
  Receipt Date: 20200212
  Transmission Date: 20200409
  Serious: Yes (Other)
  Sender: FDA-Public Use
  Company Number: DE-PFIZER INC-2020046989

PATIENT
  Age: 80 Year
  Sex: Female

DRUGS (8)
  1. COLISTIN [Suspect]
     Active Substance: COLISTIN
     Indication: PNEUMONIA PSEUDOMONAL
  2. DAPTOMYCIN. [Concomitant]
     Active Substance: DAPTOMYCIN
     Indication: PNEUMONIA PSEUDOMONAL
     Dosage: 700 MG, UNK (EVERY 48 H)
  3. CEFTAZIDIME. [Suspect]
     Active Substance: CEFTAZIDIME
     Indication: DEVICE RELATED INFECTION
     Dosage: 2 G, 2X/DAY (EVERY 12 H)
  4. CEFTAZIDIME. [Suspect]
     Active Substance: CEFTAZIDIME
     Indication: PNEUMONIA PSEUDOMONAL
  5. CLINDAMYCIN. [Concomitant]
     Active Substance: CLINDAMYCIN
     Indication: PSEUDOMONAS INFECTION
     Dosage: 1 G, UNK (PER 40 G POLY(METHYL METHACRYLATE))
  6. GENTAMICIN. [Concomitant]
     Active Substance: GENTAMICIN
     Indication: PSEUDOMONAS INFECTION
     Dosage: 1 G, UNK (PER 40 G POLY(METHYL METHACRYLATE))
  7. MEROPENEM. [Concomitant]
     Active Substance: MEROPENEM
     Indication: DEVICE RELATED INFECTION
     Dosage: 1 G, 2X/DAY (EVERY 12 H)
     Route: 042
  8. COLISTIN [Suspect]
     Active Substance: COLISTIN
     Indication: DEVICE RELATED INFECTION
     Dosage: 150 MG, DAILY (EVERY 24 H)
     Route: 042

REACTIONS (1)
  - Neurotoxicity [Unknown]
